FAERS Safety Report 4598065-X (Version None)
Quarter: 2005Q1

REPORT INFORMATION
  Report Type: 
  Country: None (occurrence: None)
  Receive Date: 20050304
  Receipt Date: 20050110
  Transmission Date: 20050727
  Serious: Yes (Hospitalization)
  Sender: FDA-Public Use
  Company Number: US-KINGPHARMUSA00001-K200500030

PATIENT
  Age: 60 Year
  Sex: Male

DRUGS (9)
  1. ALTACE [Suspect]
     Indication: CARDIAC FAILURE
     Dosage: 10 MG, QD
     Route: 048
     Dates: start: 20010301
  2. ROSUVASTATIN [Suspect]
     Indication: CARDIAC FAILURE CHRONIC
     Dosage: 10 MG, QD
     Route: 048
     Dates: start: 20040512, end: 20040918
  3. BURINEX [Concomitant]
     Indication: CARDIAC FAILURE
     Dosage: 4 MG, UNK
     Route: 048
     Dates: start: 20030812
  4. KREDEX [Concomitant]
     Indication: CARDIAC FAILURE
     Dosage: 50 MG, UNK
     Route: 048
     Dates: start: 20030812
  5. ALBYL-E [Concomitant]
     Indication: DRESSLER'S SYNDROME
     Dosage: 75 MG, UNK
     Route: 048
     Dates: start: 20040511
  6. LOSEC [Concomitant]
     Indication: REFLUX OESOPHAGITIS
     Dosage: 20 MG, UNK
     Route: 048
     Dates: start: 19991101
  7. ALOPAM [Concomitant]
     Indication: SLEEP DISORDER
     Dosage: 25 MG, UNK
     Route: 048
     Dates: start: 20010501
  8. ACETAMINOPHEN [Concomitant]
     Indication: FIBROMYALGIA
     Route: 048
     Dates: start: 19920101
  9. PARALGIN FORTE [Concomitant]
     Indication: FIBROMYALGIA
     Dosage: UNK, UNK
     Route: 048
     Dates: start: 19941201

REACTIONS (5)
  - DIARRHOEA [None]
  - HYPOTENSION [None]
  - INFUSION SITE PHLEBITIS [None]
  - PNEUMONIA [None]
  - RENAL FAILURE [None]
